FAERS Safety Report 5947346-3 (Version None)
Quarter: 2008Q4

REPORT INFORMATION
  Report Type: 
  Country: None (occurrence: None)
  Receive Date: 20081110
  Receipt Date: 20081031
  Transmission Date: 20090506
  Serious: Yes (Other)
  Sender: FDA-Public Use
  Company Number: US-PFIZER INC-2008092738

PATIENT
  Sex: Male
  Weight: 70.3 kg

DRUGS (3)
  1. ZOLOFT [Suspect]
     Indication: DEPRESSION
     Dates: start: 20081001
  2. ELAVIL [Suspect]
     Dates: start: 20081001
  3. OXYCODONE HCL [Concomitant]

REACTIONS (3)
  - DYSURIA [None]
  - MYOCLONUS [None]
  - WITHDRAWAL SYNDROME [None]
